FAERS Safety Report 9479148 (Version 2)
Quarter: 2013Q3

REPORT INFORMATION
  Report Type: Report from Study
  Country: NO (occurrence: NO)
  Receive Date: 20130827
  Receipt Date: 20130827
  Transmission Date: 20140515
  Serious: Yes (Hospitalization)
  Sender: FDA-Public Use
  Company Number: NO-BRISTOL-MYERS SQUIBB COMPANY-15001514

PATIENT
  Age: 32 Year
  Sex: Female

DRUGS (3)
  1. WARFARIN SODIUM [Suspect]
     Indication: EMBOLISM
     Dosage: INTERRUPTED ON 08MAR2010.RESTARTED ON 10MAR2010-CONT
     Route: 048
     Dates: start: 20100224
  2. ENOXAPARIN [Suspect]
     Indication: EMBOLISM
     Dosage: 24FEB-28FEB10 OPEN LABEL 60MGX2,05MAR-09MAR10?10MAR-25MAR10?OPEN LABEL 60MGX1,16JAN-18JAN10
     Route: 058
     Dates: start: 20100224
  3. PLACEBO [Suspect]
     Indication: EMBOLISM
     Dosage: APIXA+WARF:INTER ON 08MAR10,PO?ENOX:24FEB-28FEB10,05MAR-09MAR10,10MAR-25MAR10,SC?RESTA 10MAR10-CON
     Dates: start: 20100224

REACTIONS (3)
  - Pelvic pain [Recovered/Resolved]
  - Phlebitis [Unknown]
  - Venous thrombosis [Recovered/Resolved]
